FAERS Safety Report 19575677 (Version 2)
Quarter: 2021Q3

REPORT INFORMATION
  Report Type: Spontaneous
  Country: IL (occurrence: IL)
  Receive Date: 20210719
  Receipt Date: 20210728
  Transmission Date: 20211014
  Serious: Yes (Other)
  Sender: FDA-Public Use
  Company Number: IL-PFIZER INC-2021292686

PATIENT
  Age: 71 Year
  Sex: Male

DRUGS (1)
  1. ELELYSO [Suspect]
     Active Substance: TALIGLUCERASE ALFA
     Dosage: 1000/1200 UNITS PER INFUSTION TWICE A MONTH
     Route: 042

REACTIONS (7)
  - Visual impairment [Unknown]
  - Malaise [Unknown]
  - Deafness [Unknown]
  - Hypertension [Unknown]
  - Vision blurred [Unknown]
  - Inappropriate schedule of product administration [Unknown]
  - Neurological symptom [Unknown]

NARRATIVE: CASE EVENT DATE: 20210613
